FAERS Safety Report 8206983-6 (Version None)
Quarter: 2012Q1

REPORT INFORMATION
  Report Type: 
  Country: None (occurrence: None)
  Receive Date: 20120314
  Receipt Date: 20120302
  Transmission Date: 20120608
  Serious: Yes (Hospitalization)
  Sender: FDA-Public Use
  Company Number: US-ELI_LILLY_AND_COMPANY-US201109004513

PATIENT
  Sex: Female
  Weight: 64.853 kg

DRUGS (3)
  1. FORTEO [Suspect]
     Dosage: UNK, UNKNOWN
     Route: 065
  2. FORTEO [Suspect]
     Indication: OSTEOPOROSIS
     Dosage: UNK UNK, UNKNOWN
  3. FORTEO [Suspect]
     Dosage: UNK, UNKNOWN
     Route: 065

REACTIONS (6)
  - RHEUMATOID ARTHRITIS [None]
  - BLOOD POTASSIUM DECREASED [None]
  - CYSTITIS [None]
  - ARTHRITIS [None]
  - HEART RATE INCREASED [None]
  - FUNGAL INFECTION [None]
